FAERS Safety Report 5141293-5 (Version None)
Quarter: 2006Q4

REPORT INFORMATION
  Report Type: 
  Country: None (occurrence: None)
  Receive Date: 20061101
  Receipt Date: 20060919
  Transmission Date: 20070319
  Serious: Yes (Life-Threatening, Hospitalization)
  Sender: FDA-Public Use
  Company Number: DE-BAYER-200611239BVD

PATIENT
  Age: 69 Year
  Sex: Male
  Weight: 90 kg

DRUGS (47)
  1. APROTININ [Suspect]
     Route: 042
     Dates: start: 20060914, end: 20060914
  2. TAZOBAC [Concomitant]
     Indication: LUNG INFECTION
     Dosage: TOTAL DAILY DOSE: 9 MG
     Route: 042
     Dates: start: 20060919, end: 20060930
  3. CIPROFLOXACIN HCL [Concomitant]
     Indication: LUNG INFECTION
     Dosage: TOTAL DAILY DOSE: 800 MG
     Route: 042
     Dates: start: 20060919, end: 20060930
  4. ACETYLCYSTEINE [Concomitant]
     Dates: start: 20060919
  5. ERYTHROMYCIN [Concomitant]
     Indication: INFECTION
     Dates: start: 20060919
  6. FUROSEMIDE [Concomitant]
     Route: 042
     Dates: start: 20060919
  7. METOPROLOL TARTRATE [Concomitant]
     Indication: HYPERTENSION
     Route: 048
     Dates: end: 20060919
  8. NORVASC [Concomitant]
     Indication: HYPERTENSION
     Route: 048
     Dates: end: 20060919
  9. AUGMENTIN '125' [Concomitant]
     Route: 048
     Dates: start: 20060914, end: 20060915
  10. SPASMEX [Concomitant]
     Indication: BLADDER SPASM
     Dates: start: 20060914, end: 20060919
  11. MOVICOL [Concomitant]
     Indication: CONSTIPATION
     Dosage: TOTAL DAILY DOSE: 3 U
     Dates: start: 20060918, end: 20060919
  12. NITROGLYCERIN [Concomitant]
     Indication: HYPERTENSION
     Dates: start: 20060916, end: 20060917
  13. LAXOBERAL [Concomitant]
     Indication: CONSTIPATION
     Dates: start: 20060917, end: 20060917
  14. LASIX [Concomitant]
     Route: 042
     Dates: start: 20060919, end: 20060926
  15. MORPHIUM [Concomitant]
     Dates: start: 20060919, end: 20060919
  16. PANTOZOL [Concomitant]
     Dates: start: 20060919
  17. PROSTIGMIN [Concomitant]
     Indication: CONSTIPATION
     Dates: start: 20060919, end: 20060919
  18. PANTHENOL [Concomitant]
     Indication: CONSTIPATION
     Dates: start: 20060919, end: 20060919
  19. DIPIDOLOR [Concomitant]
     Dates: start: 20060916, end: 20060917
  20. DIPIDOLOR [Concomitant]
     Dates: start: 20060918, end: 20060918
  21. METROCLOPRAMID [Concomitant]
     Indication: NAUSEA
     Dates: start: 20060917, end: 20060917
  22. METROCLOPRAMID [Concomitant]
     Dates: start: 20060916, end: 20060916
  23. TOBRAMYCIN SULFATE [Concomitant]
     Indication: INFECTION
     Dates: start: 20060918, end: 20060918
  24. NORADRENALIN [Concomitant]
     Route: 042
     Dates: start: 20060919, end: 20060929
  25. EPINEPHRINE [Concomitant]
     Dates: start: 20060919
  26. SUFENTANIL CITRATE [Concomitant]
     Indication: SEDATION
     Route: 042
     Dates: start: 20060919
  27. MIDAZOLAM [Concomitant]
     Indication: SEDATION
     Route: 042
     Dates: start: 20060919
  28. HEPARIN [Concomitant]
     Route: 042
     Dates: start: 20060919
  29. FLUCONAZOLE [Concomitant]
     Indication: FUNGAL INFECTION
     Dates: start: 20060922, end: 20060924
  30. VARICONAZOL [Concomitant]
     Indication: FUNGAL INFECTION
     Dates: start: 20060922, end: 20060926
  31. LINEZOLID [Concomitant]
     Indication: INFECTION
     Dates: start: 20060923, end: 20060930
  32. AMPHO B [Concomitant]
     Indication: INFECTION
     Dates: start: 20060926
  33. DREISAVIT [Concomitant]
     Indication: INFECTION
     Dates: start: 20061002
  34. MEROPENEM [Concomitant]
     Indication: BACTERIAL INFECTION
     Route: 042
  35. CASPOFUNGIN [Concomitant]
     Indication: BACTERIAL INFECTION
  36. METRONIDAZOLE [Concomitant]
     Indication: PROPHYLAXIS
     Route: 042
     Dates: start: 20060914
  37. HCT [Concomitant]
     Indication: SEPSIS
  38. SALBUTEROL [Concomitant]
     Indication: INFECTION
     Route: 055
  39. IPRATROPIMBROMID [Concomitant]
     Route: 055
  40. ^BLOOD BOTTLES^ [Concomitant]
     Indication: HAEMORRHAGE
     Dosage: AS USED: 250 ML
     Route: 042
     Dates: start: 20060926, end: 20060926
  41. ^BLOOD BOTTLES^ [Concomitant]
     Dosage: AS USED: 250 ML
     Route: 042
     Dates: start: 20060927, end: 20060927
  42. ^BLOOD BOTTLES^ [Concomitant]
     Dosage: AS USED: 250 ML
     Route: 042
     Dates: start: 20061001, end: 20061001
  43. ^BLOOD BOTTLES^ [Concomitant]
     Dosage: AS USED: 250 ML
     Route: 042
     Dates: start: 20060929, end: 20060929
  44. ^BLOOD BOTTLES^ [Concomitant]
     Dosage: AS USED: 250 ML
     Route: 042
  45. ^BLOOD BOTTLES^ [Concomitant]
     Dosage: AS USED: 250 ML
     Route: 042
     Dates: start: 20060930, end: 20060930
  46. ^BLOOD BOTTLES^ [Concomitant]
     Dosage: AS USED: 250 ML
     Route: 042
     Dates: start: 20061003, end: 20061003
  47. ROCEPHIN [Concomitant]
     Indication: PROPHYLAXIS
     Dates: start: 20060914

REACTIONS (7)
  - BRONCHOPULMONARY ASPERGILLOSIS [None]
  - HEPATIC FAILURE [None]
  - LARGE INTESTINAL HAEMORRHAGE [None]
  - POST PROCEDURAL COMPLICATION [None]
  - PULMONARY OEDEMA [None]
  - RENAL FAILURE [None]
  - URETEROSTOMY SITE DISCOMFORT [None]
